FAERS Safety Report 4557000-0 (Version None)
Quarter: 2005Q1

REPORT INFORMATION
  Report Type: 
  Country: None (occurrence: None)
  Receive Date: 20050118
  Receipt Date: 20050105
  Transmission Date: 20050727
  Serious: Yes (Hospitalization)
  Sender: FDA-Public Use
  Company Number: 2004115949

PATIENT
  Age: 60 Year
  Sex: Female
  Weight: 130 kg

DRUGS (6)
  1. ZOLOFT [Suspect]
     Indication: ILL-DEFINED DISORDER
     Dosage: 50 MG (50 MG, 1 IN 1 D), ORAL
     Route: 048
     Dates: start: 20020101
  2. DILTIAZEM [Suspect]
     Indication: ILL-DEFINED DISORDER
     Dosage: 300 MG (300 MG, 1 IN 1 D), ORAL
     Route: 048
     Dates: start: 20020101
  3. URAPIDIL (URAPIDIL) [Suspect]
     Indication: ILL-DEFINED DISORDER
     Dosage: 120 MG (120MG, 1 IN 1 D), ORAL
     Route: 048
     Dates: start: 20020101
  4. RAMIPRIL [Suspect]
     Indication: ILL-DEFINED DISORDER
     Dosage: 10 MG (10 MG, 1 IN 1 D), ORAL
     Route: 048
     Dates: start: 20020101
  5. SIMVASTATIN [Suspect]
     Indication: ILL-DEFINED DISORDER
     Dosage: 30 MG (30 MG, 1 IN 1 D), ORAL
     Route: 048
     Dates: start: 20020101
  6. ACARBOSE (ACARBOSE) [Suspect]
     Indication: ILL-DEFINED DISORDER
     Dosage: 150 MG (150 MG, 1 IN 1 D), ORAL
     Route: 048
     Dates: start: 20040901, end: 20041029

REACTIONS (4)
  - BILIARY TRACT DISORDER [None]
  - CYTOLYTIC HEPATITIS [None]
  - PANCREATITIS ACUTE [None]
  - PANCREATITIS NECROTISING [None]
